FAERS Safety Report 23142607 (Version 1)
Quarter: 2023Q4

REPORT INFORMATION
  Report Type: Spontaneous
  Country: US (occurrence: None)
  Receive Date: 20231102
  Receipt Date: 20231102
  Transmission Date: 20240110
  Serious: Yes (Other)
  Sender: FDA-Public Use
  Company Number: None

PATIENT
  Age: 58 Year
  Sex: Female
  Weight: 59.4 kg

DRUGS (4)
  1. INFED [Suspect]
     Active Substance: IRON DEXTRAN
     Indication: Iron deficiency anaemia
     Dosage: OTHER FREQUENCY : ONCE;?
     Route: 042
     Dates: start: 20231025, end: 20231025
  2. Propranolol 60 mg PO daily [Concomitant]
  3. Prednisone - dosing unknown [Concomitant]
  4. Methimazole - dosing unknown [Concomitant]

REACTIONS (5)
  - Infusion related reaction [None]
  - Paraesthesia oral [None]
  - Swollen tongue [None]
  - Chest discomfort [None]
  - Back pain [None]

NARRATIVE: CASE EVENT DATE: 20231025
